FAERS Safety Report 9016532 (Version 1)
Quarter: 2013Q1

REPORT INFORMATION
  Report Type: Spontaneous
  Country: US (occurrence: US)
  Receive Date: 20130116
  Receipt Date: 20130116
  Transmission Date: 20140127
  Serious: No
  Sender: FDA-Public Use
  Company Number: US-009507513-1301USA005852

PATIENT
  Sex: Male

DRUGS (3)
  1. CORICIDIN HBP COUGH AND COLD [Suspect]
     Indication: COUGH
     Dosage: 1 DF, BID
     Route: 048
     Dates: start: 201301
  2. ACYCLOVIR [Suspect]
     Indication: PRODUCT USED FOR UNKNOWN INDICATION
     Dosage: 8 MG, QD
  3. COREG [Concomitant]
     Indication: HYPERTENSION
     Dosage: 12.5 MG, QPM

REACTIONS (2)
  - Blood pressure increased [Unknown]
  - Heart rate irregular [Unknown]
